FAERS Safety Report 6315751-1 (Version None)
Quarter: 2009Q3

REPORT INFORMATION
  Report Type: 
  Country: None (occurrence: None)
  Receive Date: 20090819
  Receipt Date: 20090522
  Transmission Date: 20100115
  Serious: No
  Sender: FDA-Public Use
  Company Number: US-BAUSCH-2009BL002588

PATIENT
  Age: 43 Year
  Sex: Female

DRUGS (3)
  1. CROMOLYN SODIUM [Suspect]
     Indication: SEASONAL ALLERGY
     Route: 045
     Dates: start: 20090521, end: 20090521
  2. CROMOLYN SODIUM [Suspect]
     Route: 045
     Dates: start: 20090522, end: 20090522
  3. NEXIUM /UNK/ [Concomitant]

REACTIONS (3)
  - DIARRHOEA [None]
  - NAUSEA [None]
  - VOMITING [None]
